FAERS Safety Report 9410858 (Version 5)
Quarter: 2015Q2

REPORT INFORMATION
  Report Type: Report from Study
  Country: GB (occurrence: GB)
  Receive Date: 20130719
  Receipt Date: 20150626
  Transmission Date: 20150821
  Serious: Yes (Hospitalization, Other)
  Sender: FDA-Public Use
  Company Number: GB-009507513-1304GBR006006

PATIENT
  Age: 77 Year
  Sex: Male

DRUGS (4)
  1. LENALIDOMIDE [Suspect]
     Active Substance: LENALIDOMIDE
     Indication: PLASMA CELL MYELOMA
     Dosage: 10 MG DAILY FOR 21 DAYS (28 DAY CYCLE)
     Route: 048
     Dates: start: 20120501, end: 20130611
  2. LENALIDOMIDE [Suspect]
     Active Substance: LENALIDOMIDE
     Dosage: 10 MG DAILY FOR 21 DAYS (28 DAY CYCLE)
     Route: 048
     Dates: start: 2013, end: 20130905
  3. VORINOSTAT [Suspect]
     Active Substance: VORINOSTAT
     Indication: PLASMA CELL MYELOMA
     Dosage: 200 MG ON DAYS 1-7 AND 15-21 (28 DAY CYCLE)
     Route: 048
     Dates: start: 20130123, end: 20130611
  4. VORINOSTAT [Suspect]
     Active Substance: VORINOSTAT
     Dosage: 200 MG ON DAYS 1-7 AND 15-21 (28 DAY CYCLE)
     Route: 048
     Dates: start: 2013, end: 20130910

REACTIONS (8)
  - Sepsis [Recovered/Resolved]
  - Constipation [Recovered/Resolved]
  - Confusional state [Recovered/Resolved]
  - Drug eruption [Recovered/Resolved with Sequelae]
  - Pyrexia [Recovered/Resolved]
  - Sepsis [Recovered/Resolved]
  - Dehydration [Recovering/Resolving]
  - Bronchopneumonia [Recovering/Resolving]

NARRATIVE: CASE EVENT DATE: 20130327
